FAERS Safety Report 6140491-1 (Version None)
Quarter: 2009Q1

REPORT INFORMATION
  Report Type: 
  Country: None (occurrence: None)
  Receive Date: 20090331
  Receipt Date: 20090319
  Transmission Date: 20090719
  Serious: Yes (Hospitalization)
  Sender: FDA-Public Use
  Company Number: US-2009-00094

PATIENT
  Age: 60 Year
  Sex: Female

DRUGS (9)
  1. CEFTRIAXONE [Suspect]
  2. ISOPHANE INSULIN [Concomitant]
  3. FUROSEMIDE (20 MILLIGRAM) [Concomitant]
  4. RAMIPRIL (10 MILLIGRAM) [Concomitant]
  5. PRAVASTATIN (20 MILLIGRAM) [Concomitant]
  6. ASPIRIN(100 MILLIGRAM) [Concomitant]
  7. NITROGLYCERINE (5 MILLIGRAM) [Concomitant]
  8. AMITRIPTYLINE (25 MILLIGRAM) [Concomitant]
  9. ESMEPRAZOLE (20 MILLIGRAM) [Concomitant]

REACTIONS (5)
  - APATHY [None]
  - BACTERIA URINE IDENTIFIED [None]
  - BLOOD CREATININE INCREASED [None]
  - PATHOGEN RESISTANCE [None]
  - TOXIC ENCEPHALOPATHY [None]
